FAERS Safety Report 20152098 (Version 2)
Quarter: 2021Q4

REPORT INFORMATION
  Report Type: Spontaneous
  Country: SI (occurrence: None)
  Receive Date: 20211206
  Receipt Date: 20211228
  Transmission Date: 20220303
  Serious: Yes (Other)
  Sender: FDA-Public Use
  Company Number: 2021A837693

PATIENT
  Age: 67 Year
  Sex: Female

DRUGS (8)
  1. FULVESTRANT [Suspect]
     Active Substance: FULVESTRANT
     Indication: Breast cancer metastatic
     Dosage: UNK
     Route: 065
     Dates: start: 201907
  2. FULVESTRANT [Suspect]
     Active Substance: FULVESTRANT
     Indication: Breast cancer metastatic
     Dosage: UNK
     Route: 065
     Dates: start: 202107
  3. PALBOCICLIB [Suspect]
     Active Substance: PALBOCICLIB
     Indication: Breast cancer
     Dosage: 125 MG, 21D (21 DAYS AND 1 WEEK OFF)
     Route: 048
     Dates: start: 201907
  4. ALPELISIB [Suspect]
     Active Substance: ALPELISIB
     Indication: Breast cancer metastatic
     Dosage: UNK
     Route: 065
     Dates: start: 202102
  5. EXEMESTANE [Suspect]
     Active Substance: EXEMESTANE
     Indication: Breast cancer
     Dosage: UNK
     Route: 065
     Dates: start: 202010, end: 202102
  6. EVEROLIMUS [Suspect]
     Active Substance: EVEROLIMUS
     Indication: Breast cancer metastatic
     Dosage: UNK
     Route: 065
     Dates: start: 2020, end: 202102
  7. CAPECITABINE [Suspect]
     Active Substance: CAPECITABINE
     Indication: Breast cancer metastatic
     Dosage: UNK
     Route: 065
     Dates: start: 202006, end: 202010
  8. LETROZOLE [Suspect]
     Active Substance: LETROZOLE
     Indication: Breast cancer metastatic
     Dosage: UNK
     Route: 065
     Dates: start: 2019

REACTIONS (15)
  - Metastases to liver [Recovering/Resolving]
  - Metastases to bone [Recovering/Resolving]
  - Metastases to pleura [Recovering/Resolving]
  - Malignant neoplasm progression [Unknown]
  - Toxicity to various agents [Unknown]
  - Breast cancer metastatic [Unknown]
  - Dyspnoea exertional [Unknown]
  - Lymphadenopathy [Unknown]
  - Bone lesion [Unknown]
  - Osteoporosis [Unknown]
  - Pleural effusion [Unknown]
  - Alopecia [Unknown]
  - Fatigue [Unknown]
  - Musculoskeletal pain [Unknown]
  - Hot flush [Unknown]

NARRATIVE: CASE EVENT DATE: 20170101
